APPROVED DRUG PRODUCT: LEVETIRACETAM
Active Ingredient: LEVETIRACETAM
Strength: 500MG
Dosage Form/Route: TABLET;ORAL
Application: A090511 | Product #002
Applicant: MPP PHARMA LLC
Approved: Aug 18, 2011 | RLD: No | RS: No | Type: DISCN